FAERS Safety Report 9322013 (Version 1)
Quarter: 2013Q2

REPORT INFORMATION
  Report Type: Spontaneous
  Country: US (occurrence: None)
  Receive Date: 20130530
  Receipt Date: 20130530
  Transmission Date: 20140414
  Serious: Yes (Other)
  Sender: FDA-Public Use
  Company Number: None

PATIENT
  Age: 60 Year
  Sex: Female

DRUGS (1)
  1. NEULASTA [Suspect]
     Indication: WHITE BLOOD CELL COUNT
     Dosage: 6MG ONCE SUBCUTANEOUS
     Route: 058
     Dates: start: 20030521

REACTIONS (1)
  - Musculoskeletal pain [None]
